FAERS Safety Report 8094166-2 (Version None)
Quarter: 2012Q1

REPORT INFORMATION
  Report Type: 
  Country: None (occurrence: None)
  Receive Date: 20120130
  Receipt Date: 20120130
  Transmission Date: 20120608
  Serious: Yes (Life-Threatening, Hospitalization)
  Sender: FDA-Public Use
  Company Number: None

PATIENT
  Age: 59 Year
  Sex: Male
  Weight: 88.904 kg

DRUGS (1)
  1. HEPARIN [Suspect]
     Indication: DRUG THERAPY
     Route: 041
     Dates: start: 20071016, end: 20071020

REACTIONS (4)
  - PAIN [None]
  - INTERNATIONAL NORMALISED RATIO ABNORMAL [None]
  - WHITE CLOT SYNDROME [None]
  - CONSTIPATION [None]
